FAERS Safety Report 8812176 (Version 2)
Quarter: 2012Q4

REPORT INFORMATION
  Report Type: 
  Country: US (occurrence: US)
  Receive Date: 20120927
  Receipt Date: 20121022
  Transmission Date: 20130627
  Serious: Yes (Hospitalization, Other)
  Sender: FDA-Public Use
  Company Number: US-VERTEX PHARMACEUTICAL INC.-2012-021535

PATIENT
  Sex: Male

DRUGS (21)
  1. INCIVEK [Suspect]
     Indication: HEPATITIS C
     Dosage: 750 mg, tid
     Route: 048
     Dates: start: 20120709
  2. RIBAVIRIN [Suspect]
     Indication: HEPATITIS C
     Dosage: 400 mg AM 600 mg PM, qd
     Route: 048
     Dates: start: 20120709
  3. RIBAVIRIN [Suspect]
     Dosage: 200mg AM, 400 mg PM, qd
  4. PEGASYS [Suspect]
     Indication: HEPATITIS C
     Dosage: 180 ?g, qw
     Route: 058
     Dates: start: 20120709
  5. MULTIVITAMINS + MINERALS PLUS LUTEIN [Concomitant]
     Dosage: 1 DF, qd
  6. FERROUS SULFATE [Concomitant]
     Dosage: 65 mg, qd
  7. SIMETHICONE [Concomitant]
     Dosage: 2 DF, qd
  8. DOCUSATE CALCIUM AND YELLOW PHENOLPHTHALEIN [Concomitant]
     Dosage: 1 DF,qd
  9. HALOPERIDOL LACTATE [Concomitant]
     Dosage: 1-2 DF, bedtime
  10. TRAZODONE HCL [Concomitant]
     Dosage: 1/2 DF, bedtime
  11. VISTARIL                           /00058403/ [Concomitant]
     Dosage: 1 DF, tid
  12. NEXIUM                             /01479302/ [Concomitant]
     Dosage: 1 DF, qd
     Route: 048
  13. ALPRAZOLAM [Concomitant]
     Dosage: 1 tip as per anxiety
  14. TRAMADOL HCL [Concomitant]
     Dosage: 1 DF, prn
  15. PROPRANOLOL HCL [Concomitant]
     Dosage: 2 DF, tid
  16. TIOTROPIUM BROMIDE MONOHYDRATE [Concomitant]
     Dosage: 1 DF, qd
  17. LISINOPRIL + HIDROCLOROTIAZIDA [Concomitant]
     Dosage: 1 DF, qd
     Route: 048
  18. RISPERIDONE [Concomitant]
     Dosage: 1 DF, bid
     Route: 048
  19. AMLODIPINE BESYLATE [Concomitant]
     Dosage: 1 DF, qd
     Route: 048
  20. DICLOFENAC [Concomitant]
     Dosage: 1 DF, prn
     Route: 048
  21. ALBUTEROL SULFATE [Concomitant]
     Dosage: 2 puffs, prn

REACTIONS (10)
  - Acute respiratory distress syndrome [Unknown]
  - Empyema [Unknown]
  - Pneumonia [Recovered/Resolved]
  - Renal tubular necrosis [Unknown]
  - Dehydration [Unknown]
  - Hypotension [Unknown]
  - Toxicity to various agents [Unknown]
  - Anaemia [Unknown]
  - Chronic obstructive pulmonary disease [Unknown]
  - Diarrhoea [Unknown]
